FAERS Safety Report 24382959 (Version 2)
Quarter: 2024Q4

REPORT INFORMATION
  Report Type: Spontaneous
  Country: US (occurrence: US)
  Receive Date: 20241001
  Receipt Date: 20241028
  Transmission Date: 20250114
  Serious: No
  Sender: TRAVERE THERAPEUTICS
  Company Number: US-TRAVERE-2024TVT00963

PATIENT
  Age: 39 Year
  Sex: Female

DRUGS (3)
  1. FILSPARI [Suspect]
     Active Substance: SPARSENTAN
     Indication: IgA nephropathy
     Route: 048
     Dates: start: 20240517
  2. FILSPARI [Suspect]
     Active Substance: SPARSENTAN
     Route: 048
     Dates: start: 202408
  3. FILSPARI [Suspect]
     Active Substance: SPARSENTAN
     Dosage: 400 MG ONCE DAILY DOSE AFTER STOPPING FOR A WEEK
     Route: 048

REACTIONS (3)
  - Glomerular filtration rate decreased [Unknown]
  - Blood creatinine increased [Unknown]
  - Product dose omission issue [Unknown]
